FAERS Safety Report 21677842 (Version 1)
Quarter: 2022Q4

REPORT INFORMATION
  Report Type: Report from Study
  Country: US (occurrence: US)
  Receive Date: 20221203
  Receipt Date: 20221203
  Transmission Date: 20230113
  Serious: No
  Sender: FDA-Public Use
  Company Number: US-ABBVIE-4189824

PATIENT
  Sex: Male

DRUGS (1)
  1. HUMIRA [Suspect]
     Active Substance: ADALIMUMAB
     Indication: Hidradenitis
     Dosage: HUMIRA CF
     Route: 058

REACTIONS (10)
  - Groin pain [Recovering/Resolving]
  - Fatigue [Recovered/Resolved]
  - Arthritis [Recovered/Resolved]
  - Rash [Recovering/Resolving]
  - Blister [Recovering/Resolving]
  - Hidradenitis [Unknown]
  - Gait disturbance [Recovering/Resolving]
  - Adverse food reaction [Unknown]
  - Swelling [Recovering/Resolving]
  - Pain in extremity [Recovering/Resolving]
